FAERS Safety Report 9247760 (Version 1)
Quarter: 2013Q1

REPORT INFORMATION
  Report Type: Spontaneous
  Country: US (occurrence: None)
  Receive Date: 20121130
  Receipt Date: 20121130
  Transmission Date: 20140127
  Serious: Yes (Hospitalization)
  Sender: FDA-Public Use
  Company Number: 345463

PATIENT
  Age: 57 Year
  Sex: Male

DRUGS (2)
  1. NOVOLOG [Suspect]
     Route: 058
  2. LANTUS [Suspect]
     Route: 058

REACTIONS (3)
  - Wrong drug administered [None]
  - Blood glucose increased [None]
  - Blood glucose decreased [None]
